FAERS Safety Report 8615384-8 (Version None)
Quarter: 2012Q3

REPORT INFORMATION
  Report Type: 
  Country: None (occurrence: None)
  Receive Date: 20120823
  Receipt Date: 20120820
  Transmission Date: 20120928
  Serious: Yes (Death, Hospitalization)
  Sender: FDA-Public Use
  Company Number: DE-PFIZER INC-2012126625

PATIENT
  Age: 36 Year
  Sex: Male

DRUGS (2)
  1. CLARITHROMYCIN [Suspect]
     Indication: CROHN'S DISEASE
     Dosage: 750 MG, 1X/DAY
  2. MYCOBUTIN [Suspect]
     Indication: CROHN'S DISEASE
     Dosage: 300 MG, 1X/DAY
     Route: 048

REACTIONS (4)
  - COMPLETED SUICIDE [None]
  - INSOMNIA [None]
  - OVERWORK [None]
  - PSYCHOTIC DISORDER [None]
